FAERS Safety Report 5722301-7 (Version None)
Quarter: 2008Q2

REPORT INFORMATION
  Report Type: 
  Country: None (occurrence: None)
  Receive Date: 20080429
  Receipt Date: 20070622
  Transmission Date: 20081010
  Serious: No
  Sender: FDA-Public Use
  Company Number: US-ASTRAZENECA-2007UW15034

PATIENT
  Age: 80 Year
  Sex: Female
  Weight: 72.6 kg

DRUGS (11)
  1. NEXIUM [Suspect]
     Indication: GASTROOESOPHAGEAL REFLUX DISEASE
     Route: 048
     Dates: start: 20060101
  2. CELEBREX [Concomitant]
     Route: 048
  3. ASPIRIN [Concomitant]
     Route: 048
  4. ESTRACE [Concomitant]
     Route: 061
  5. EVISTA [Concomitant]
  6. HYDROCHLOROTHIAZIDE [Concomitant]
     Route: 048
  7. LEVOTHYROXINE SODIUM [Concomitant]
  8. SIMVASTATIN [Concomitant]
  9. METOPROLOL TARTRATE [Concomitant]
  10. AMBIEN [Concomitant]
     Route: 048
  11. FEXOFENADINE [Concomitant]

REACTIONS (3)
  - COUGH [None]
  - DRUG INEFFECTIVE [None]
  - DYSPHONIA [None]
